FAERS Safety Report 6233886-9 (Version None)
Quarter: 2009Q2

REPORT INFORMATION
  Report Type: 
  Country: None (occurrence: None)
  Receive Date: 20090618
  Receipt Date: 20090615
  Transmission Date: 20091009
  Serious: Yes (Hospitalization, Disabling)
  Sender: FDA-Public Use
  Company Number: FR-BRISTOL-MYERS SQUIBB COMPANY-14667372

PATIENT
  Age: 74 Year
  Sex: Female

DRUGS (4)
  1. COUMADIN [Suspect]
     Dates: start: 20090201, end: 20090412
  2. CORDARONE [Concomitant]
  3. DIGOXIN [Concomitant]
  4. PREVISCAN [Concomitant]

REACTIONS (2)
  - HEAD INJURY [None]
  - SUBDURAL HAEMATOMA [None]
